FAERS Safety Report 9180770 (Version 2)
Quarter: 2013Q2

REPORT INFORMATION
  Report Type: Spontaneous
  Country: US (occurrence: US)
  Receive Date: 20130322
  Receipt Date: 20130422
  Transmission Date: 20140414
  Serious: No
  Sender: FDA-Public Use
  Company Number: US-GENZYME-CERZ-1002857

PATIENT
  Age: 33 Year
  Sex: Male
  Weight: 105.67 kg

DRUGS (1)
  1. CEREZYME [Suspect]
     Indication: GAUCHER^S DISEASE
     Dosage: (4806) 45.48 UNK, Q2W
     Route: 042
     Dates: start: 20100927, end: 20111129

REACTIONS (2)
  - Fall [Unknown]
  - Upper limb fracture [Not Recovered/Not Resolved]
